FAERS Safety Report 16212025 (Version 1)
Quarter: 2019Q2

REPORT INFORMATION
  Report Type: Spontaneous
  Country: US (occurrence: US)
  Receive Date: 20190417
  Receipt Date: 20190417
  Transmission Date: 20190711
  Serious: Yes (Other)
  Sender: FDA-Public Use
  Company Number: None

PATIENT
  Age: 72 Year
  Sex: Male
  Weight: 76.5 kg

DRUGS (8)
  1. MULTI VITAMINS [Concomitant]
     Active Substance: VITAMINS
  2. ATENOLOL. [Concomitant]
     Active Substance: ATENOLOL
  3. LOSARTAN POTASSIUM. [Concomitant]
     Active Substance: LOSARTAN POTASSIUM
  4. ESOMEPRAZOLE. [Concomitant]
     Active Substance: ESOMEPRAZOLE MAGNESIUM
  5. CHLORTHALIDONE. [Concomitant]
     Active Substance: CHLORTHALIDONE
  6. CAPECITABINE. [Suspect]
     Active Substance: CAPECITABINE
     Indication: NEOPLASM
     Route: 048
     Dates: start: 20190204
  7. ATORVASTATIN [Concomitant]
     Active Substance: ATORVASTATIN
  8. HYDROMORPHONE [Concomitant]
     Active Substance: HYDROMORPHONE

REACTIONS (3)
  - Joint swelling [None]
  - Diarrhoea [None]
  - Peripheral swelling [None]
